FAERS Safety Report 8170343-7 (Version None)
Quarter: 2012Q1

REPORT INFORMATION
  Report Type: 
  Country: None (occurrence: None)
  Receive Date: 20120228
  Receipt Date: 20120221
  Transmission Date: 20120608
  Serious: Yes (Hospitalization)
  Sender: FDA-Public Use
  Company Number: IT-ASTELLAS-2012US002088

PATIENT

DRUGS (5)
  1. TENORMIN [Concomitant]
     Indication: PRODUCT USED FOR UNKNOWN INDICATION
     Dosage: 0.5 DF, UID/QD
     Route: 048
     Dates: start: 19960101, end: 20120220
  2. RANITIDINA [Concomitant]
     Indication: PRODUCT USED FOR UNKNOWN INDICATION
     Dosage: 300 MG, UNKNOWN/D
     Route: 048
     Dates: start: 20110819, end: 20120125
  3. TARCEVA [Suspect]
     Indication: NON-SMALL CELL LUNG CANCER
     Dosage: 1 DF, UID/QD
     Route: 048
     Dates: start: 20110819, end: 20120105
  4. ISMO [Concomitant]
     Indication: PRODUCT USED FOR UNKNOWN INDICATION
     Dosage: 3 DF, UID/QD
     Route: 048
     Dates: start: 19960101, end: 20120220
  5. ASPIRIN [Concomitant]
     Indication: PRODUCT USED FOR UNKNOWN INDICATION
     Dosage: 1 DF, UID/QD
     Route: 048
     Dates: start: 19960101, end: 20120220

REACTIONS (2)
  - JAUNDICE CHOLESTATIC [None]
  - DIVERTICULUM INTESTINAL [None]
